FAERS Safety Report 6148787-4 (Version None)
Quarter: 2009Q2

REPORT INFORMATION
  Report Type: 
  Country: None (occurrence: None)
  Receive Date: 20090408
  Receipt Date: 20090331
  Transmission Date: 20091009
  Serious: Yes (Hospitalization, Other)
  Sender: FDA-Public Use
  Company Number: CH-ELI_LILLY_AND_COMPANY-CH200902000543

PATIENT
  Age: 36 Year
  Sex: Female

DRUGS (13)
  1. ZYPREXA [Suspect]
     Indication: SCHIZOAFFECTIVE DISORDER
     Dosage: 5 MG, DAILY (1/D)
     Route: 048
     Dates: end: 20060101
  2. ZYPREXA [Suspect]
     Dosage: 20 MG, DAILY (1/D)
     Route: 048
     Dates: start: 20060101, end: 20070101
  3. ZYPREXA [Suspect]
     Dosage: 10 MG, DAILY (1/D)
     Route: 048
     Dates: start: 20070101, end: 20080101
  4. ZYPREXA [Suspect]
     Dosage: 5 MG, DAILY (1/D)
     Route: 048
     Dates: start: 20080101, end: 20090101
  5. FLUVOXAMINE MALEATE [Concomitant]
     Indication: SCHIZOAFFECTIVE DISORDER
     Dosage: 200 MG, DAILY (1/D)
     Route: 048
  6. SPASMO-CANULASE [Concomitant]
     Dosage: 1 D/F, EACH MORNING
     Route: 048
  7. SPASMO-CANULASE [Concomitant]
     Dosage: 2 D/F, DAILY (1/D)
     Route: 048
  8. LORAZEPAM [Concomitant]
     Dosage: 1 MG, DAILY (1/D)
     Route: 048
  9. LORAZEPAM [Concomitant]
     Dosage: 3 MG, DAILY (1/D)
     Route: 048
  10. SYMBICORT [Concomitant]
     Indication: ASTHMA
     Dosage: UNK, AS NEEDED
     Route: 055
  11. DAFALGAN [Concomitant]
     Indication: PAIN
     Dosage: 1 G, AS NEEDED
     Route: 048
  12. TOPAMAX [Concomitant]
     Dosage: 100 MG, DAILY (1/D)
     Route: 048
     Dates: start: 20060101
  13. TOPAMAX [Concomitant]
     Dosage: 200 MG, DAILY (1/D)
     Route: 048
     Dates: end: 20080101

REACTIONS (11)
  - DIZZINESS [None]
  - DRUG WITHDRAWAL SYNDROME [None]
  - FATIGUE [None]
  - HEADACHE [None]
  - HOSPITALISATION [None]
  - HYPERGLYCAEMIA [None]
  - HYPOGLYCAEMIA [None]
  - INCREASED APPETITE [None]
  - MUTISM [None]
  - NAUSEA [None]
  - PSYCHOTIC DISORDER [None]
